FAERS Safety Report 9440364 (Version 1)
Quarter: 2013Q3

REPORT INFORMATION
  Report Type: Report from Study
  Country: CA (occurrence: CA)
  Receive Date: 20130805
  Receipt Date: 20130805
  Transmission Date: 20140515
  Serious: Yes (Other)
  Sender: FDA-Public Use
  Company Number: CA-JNJFOC-20130717018

PATIENT
  Age: 66 Year
  Sex: Female
  Weight: 68 kg

DRUGS (4)
  1. REMICADE [Suspect]
     Indication: CROHN^S DISEASE
     Route: 042
     Dates: start: 20130206, end: 20130724
  2. HYDROCORTISONE [Concomitant]
     Route: 042
  3. TYLENOL [Concomitant]
     Route: 048
  4. BENADRYL [Concomitant]
     Route: 048

REACTIONS (1)
  - Systemic lupus erythematosus [Unknown]
